FAERS Safety Report 13421539 (Version 1)
Quarter: 2017Q2

REPORT INFORMATION
  Report Type: Spontaneous
  Country: FR (occurrence: FR)
  Receive Date: 20170410
  Receipt Date: 20170410
  Transmission Date: 20170830
  Serious: Yes (Other)
  Sender: FDA-Public Use
  Company Number: FR-ABBVIE-17K-056-1938011-00

PATIENT
  Age: 60 Year
  Sex: Male

DRUGS (1)
  1. DUODOPA [Suspect]
     Active Substance: CARBIDOPA\LEVODOPA
     Indication: PARKINSON^S DISEASE
     Route: 050
     Dates: start: 201505

REACTIONS (7)
  - Gastrooesophageal reflux disease [Unknown]
  - Staphylococcal skin infection [Unknown]
  - Dyskinesia [Recovering/Resolving]
  - On and off phenomenon [Recovering/Resolving]
  - Device connection issue [Unknown]
  - Device alarm issue [Unknown]
  - Dermatitis contact [Unknown]

NARRATIVE: CASE EVENT DATE: 201505
